FAERS Safety Report 10156243 (Version 3)
Quarter: 2014Q2

REPORT INFORMATION
  Report Type: Report from Study
  Country: DE (occurrence: DE)
  Receive Date: 20140507
  Receipt Date: 20140604
  Transmission Date: 20141212
  Serious: Yes (Hospitalization)
  Sender: FDA-Public Use
  Company Number: DE-ROCHE-1392310

PATIENT
  Age: 63 Year
  Sex: Female
  Weight: 55 kg

DRUGS (7)
  1. BEVACIZUMAB [Suspect]
     Indication: OVARIAN CANCER RECURRENT
     Dosage: LAST DOSE BEFORE SAE 17/APR/2014
     Route: 042
     Dates: start: 20140328, end: 20140428
  2. CARBOPLATIN [Suspect]
     Indication: OVARIAN CANCER RECURRENT
     Dosage: LAST DOSE BEFORE SAE 17/APR/2014
     Route: 042
     Dates: start: 20140328
  3. GEMCITABINE [Suspect]
     Indication: OVARIAN CANCER RECURRENT
     Dosage: LAST DOSE BEFORE SAE 24/APR/2014
     Route: 042
     Dates: start: 20140328
  4. HEPARIN [Concomitant]
     Dosage: 8000 IE/H
     Route: 042
     Dates: start: 20140425, end: 20140425
  5. HEPARIN [Concomitant]
     Dosage: 1000 IE/H
     Route: 042
     Dates: start: 20140425
  6. PROSTAVASIN [Concomitant]
     Route: 042
     Dates: start: 20140426
  7. DIPIDOLOR [Concomitant]
     Route: 042
     Dates: start: 20140426

REACTIONS (1)
  - Arterial occlusive disease [Recovering/Resolving]
